FAERS Safety Report 6316837-8 (Version None)
Quarter: 2009Q3

REPORT INFORMATION
  Report Type: 
  Country: None (occurrence: None)
  Receive Date: 20090820
  Receipt Date: 20090807
  Transmission Date: 20100115
  Serious: Yes (Hospitalization)
  Sender: FDA-Public Use
  Company Number: GB-ROCHE-649837

PATIENT
  Age: 6 Year
  Sex: Male

DRUGS (3)
  1. TAMIFLU [Suspect]
     Indication: DRUG USE FOR UNKNOWN INDICATION
     Route: 065
     Dates: start: 20090716, end: 20090720
  2. NOVORAPID [Concomitant]
  3. LEVEMIR [Concomitant]

REACTIONS (1)
  - HYPOGLYCAEMIA [None]
